FAERS Safety Report 6438436-X (Version None)
Quarter: 2009Q4

REPORT INFORMATION
  Report Type: 
  Country: None (occurrence: None)
  Receive Date: 20091109
  Receipt Date: 20091030
  Transmission Date: 20100525
  Serious: Yes (Disabling)
  Sender: FDA-Public Use
  Company Number: CIP09002999

PATIENT
  Age: 78 Year
  Sex: Female

DRUGS (1)
  1. ACTONEL WITH CALCIUM (COPACKAGED) [Suspect]
     Indication: OSTEOPOROSIS
     Dosage: 1 TABLET CYCLIC DAILY, ORAL
     Route: 048
     Dates: start: 20090901, end: 20090901

REACTIONS (3)
  - ASTHENIA [None]
  - DISSOCIATION [None]
  - DIZZINESS [None]
